FAERS Safety Report 14281991 (Version 1)
Quarter: 2017Q4

REPORT INFORMATION
  Report Type: Spontaneous
  Country: CH (occurrence: CH)
  Receive Date: 20171213
  Receipt Date: 20171213
  Transmission Date: 20180321
  Serious: Yes (Other)
  Sender: FDA-Public Use
  Company Number: CH-JNJFOC-20171214024

PATIENT
  Age: 81 Year
  Sex: Male

DRUGS (22)
  1. CALCIMAGON D3 [Concomitant]
     Active Substance: CALCIUM\CHOLECALCIFEROL
     Dosage: 500MG/800UI
     Route: 065
  2. VITAMIN B12 [Concomitant]
     Active Substance: CYANOCOBALAMIN
     Route: 065
  3. ELOCOM [Concomitant]
     Active Substance: MOMETASONE FUROATE
     Route: 065
     Dates: start: 20160211, end: 201605
  4. LAXOBERON [Concomitant]
     Active Substance: SODIUM PICOSULFATE
     Route: 065
     Dates: start: 201601, end: 201605
  5. CLYSSIE [Concomitant]
     Route: 065
     Dates: start: 201601, end: 201605
  6. TAVANIC [Suspect]
     Active Substance: LEVOFLOXACIN
     Indication: DYSPNOEA
     Route: 065
     Dates: start: 20170925, end: 20170925
  7. BELOC-ZOK COMP [Suspect]
     Active Substance: HYDROCHLOROTHIAZIDE\METOPROLOL SUCCINATE
     Indication: HYPERTENSION
     Route: 048
     Dates: start: 2012
  8. PARACETAMOL [Suspect]
     Active Substance: ACETAMINOPHEN
     Indication: PYREXIA
     Route: 048
     Dates: start: 201601
  9. REMINYL [Suspect]
     Active Substance: GALANTAMINE
     Indication: MIXED DEMENTIA
     Route: 048
     Dates: start: 201603
  10. PURSANA [Concomitant]
     Active Substance: FIG FRUIT OIL\SORBITOL
     Route: 065
  11. SOLMUCALM [Suspect]
     Active Substance: ACETYLCYSTEINE\CHLORPHENIRAMINE MALEATE
     Indication: PRODUCTIVE COUGH
     Route: 048
     Dates: start: 20170919, end: 201710
  12. MOVICOL [Concomitant]
     Active Substance: POLYETHYLENE GLYCOL 3350\POTASSIUM CHLORIDE\SODIUM BICARBONATE\SODIUM CHLORIDE
     Route: 065
  13. ACIDUM FOLICUM [Concomitant]
     Active Substance: FOLIC ACID
     Route: 065
  14. PERFALGAN [Suspect]
     Active Substance: ACETAMINOPHEN
     Indication: PYREXIA
     Route: 040
     Dates: start: 201709, end: 201709
  15. CO-AMOXI [Concomitant]
     Active Substance: AMOXICILLIN\CLAVULANATE POTASSIUM
     Route: 065
     Dates: start: 20170926, end: 20171004
  16. CLARITHROMYCINE [Concomitant]
     Active Substance: CLARITHROMYCIN
     Route: 065
  17. ROCEPHINE [Concomitant]
     Active Substance: CEFTRIAXONE SODIUM
     Dosage: NO.OF SEPARATE DOSAGES: 1
     Route: 065
     Dates: start: 20170925, end: 20170925
  18. IPRAMOL [Concomitant]
     Active Substance: ALBUTEROL SULFATE\IPRATROPIUM BROMIDE
     Route: 065
     Dates: start: 20170925, end: 20170926
  19. SORTIS [Concomitant]
     Active Substance: ATORVASTATIN
     Route: 065
  20. ASPIRIN CARDIO [Suspect]
     Active Substance: ASPIRIN
     Indication: STENT PLACEMENT
     Route: 048
     Dates: start: 2009
  21. NEXIUM [Suspect]
     Active Substance: ESOMEPRAZOLE MAGNESIUM
     Indication: PRODUCT USED FOR UNKNOWN INDICATION
     Route: 065
     Dates: start: 201601
  22. FORTIMEL CREME [Concomitant]
     Route: 065
     Dates: start: 2016, end: 2016

REACTIONS (1)
  - Mixed liver injury [Recovering/Resolving]

NARRATIVE: CASE EVENT DATE: 20170925
